FAERS Safety Report 11233696 (Version 1)
Quarter: 2015Q3

REPORT INFORMATION
  Report Type: Spontaneous
  Country: US (occurrence: US)
  Receive Date: 20150702
  Receipt Date: 20150702
  Transmission Date: 20151125
  Serious: Yes (Other)
  Sender: FDA-Public Use
  Company Number: US-HOSPIRA-2917094

PATIENT
  Age: 45 Year
  Sex: Male
  Weight: 104.77 kg

DRUGS (8)
  1. LOVENOX [Suspect]
     Active Substance: ENOXAPARIN SODIUM
     Indication: DEEP VEIN THROMBOSIS
     Dosage: DAILY
     Route: 058
  2. ZOFRAN [Suspect]
     Active Substance: ONDANSETRON HYDROCHLORIDE
     Indication: NAUSEA
     Dosage: DAILY
     Route: 042
     Dates: start: 20150520, end: 20150523
  3. PACLITAXEL. [Suspect]
     Active Substance: PACLITAXEL
     Indication: SEMINOMA
     Dosage: OVER 24 HOURS Q 3 WEEKS
     Route: 042
     Dates: start: 20150609, end: 20150613
  4. PACLITAXEL. [Suspect]
     Active Substance: PACLITAXEL
     Indication: SEMINOMA
     Dosage: OVER 24 HOURS Q 3 WEEKS
     Route: 042
     Dates: start: 20150609, end: 20150613
  5. PACLITAXEL. [Suspect]
     Active Substance: PACLITAXEL
     Indication: SEMINOMA
     Dosage: OVER 24 HOURS Q 3 WEEKS
     Route: 042
     Dates: start: 20150609, end: 20150613
  6. CISPLATIN. [Concomitant]
     Active Substance: CISPLATIN
     Indication: SEMINOMA
  7. PACLITAXEL. [Suspect]
     Active Substance: PACLITAXEL
     Indication: SEMINOMA
     Dosage: OVER 24 HOURS Q 3 WEEKS
     Route: 042
     Dates: start: 20150519, end: 20150522
  8. IFOSFAMIDE. [Concomitant]
     Active Substance: IFOSFAMIDE
     Indication: SEMINOMA

REACTIONS (3)
  - Transaminases increased [Recovered/Resolved]
  - Transaminases increased [Recovered/Resolved]
  - Transaminases increased [Recovered/Resolved]

NARRATIVE: CASE EVENT DATE: 201505
